FAERS Safety Report 8961633 (Version 4)
Quarter: 2013Q2

REPORT INFORMATION
  Report Type: Spontaneous
  Country: US (occurrence: US)
  Receive Date: 20121213
  Receipt Date: 20130516
  Transmission Date: 20140414
  Serious: Yes (Hospitalization)
  Sender: FDA-Public Use
  Company Number: US-BAYER-2012-129255

PATIENT
  Age: 45 Year
  Sex: Female
  Weight: 104.31 kg

DRUGS (16)
  1. YAZ [Suspect]
     Dosage: UNK
     Dates: start: 20100325, end: 20100910
  2. YASMIN [Suspect]
     Dosage: UNK
     Dates: start: 20100325, end: 20100910
  3. LORAZEPAM [Concomitant]
     Indication: ANXIETY
     Dosage: UNK
     Dates: start: 20120917
  4. CITALOPRAM [Concomitant]
     Indication: DEPRESSION
  5. AMILORID/HCTZ [Concomitant]
     Indication: HYPERTENSION
     Dosage: UNK
     Dates: start: 20120917
  6. LORATADIN [Concomitant]
     Dosage: UNK
     Dates: start: 20120917
  7. OMEPRAZOLE [Concomitant]
     Indication: DYSPEPSIA
     Dosage: UNK
     Dates: start: 20120917
  8. IBUPROFEN [Concomitant]
     Indication: PAIN
     Dosage: UNK
     Dates: start: 20120917
  9. SPRINTEC [Concomitant]
  10. PREDNISONE [Concomitant]
  11. AZITHROMYCIN [Concomitant]
  12. RANITIDINE [Concomitant]
  13. HYDROCHLOROTHIAZIDE [Concomitant]
  14. MUCINEX [Concomitant]
  15. LISINOPRIL [Concomitant]
  16. CELEXA [Concomitant]

REACTIONS (9)
  - Pulmonary embolism [None]
  - Deep vein thrombosis [None]
  - Pain [None]
  - Injury [None]
  - General physical health deterioration [None]
  - Anxiety [None]
  - Anhedonia [None]
  - Emotional distress [None]
  - Pain [None]
